FAERS Safety Report 6420860-2 (Version None)
Quarter: 2009Q4

REPORT INFORMATION
  Report Type: 
  Country: None (occurrence: None)
  Receive Date: 20091030
  Receipt Date: 20091021
  Transmission Date: 20100525
  Serious: Yes (Hospitalization, Other)
  Sender: FDA-Public Use
  Company Number: GB-RANBAXY-2009RR-28794

PATIENT
  Age: 40 Year
  Sex: Female

DRUGS (8)
  1. OMEPRAZOLE [Suspect]
     Indication: COLITIS ULCERATIVE
     Dosage: 20 MG, UNK
     Route: 065
  2. AMITRIPTYLINE [Suspect]
     Indication: MOOD ALTERED
     Route: 065
  3. CITALOPRAM [Suspect]
     Indication: DEPRESSED MOOD
     Dosage: 40 MG, UNK
     Route: 047
  4. CLOZARIL [Suspect]
     Indication: SCHIZOPHRENIA
     Dosage: 350 MG, QD
     Route: 048
     Dates: start: 20000805, end: 20090914
  5. PRIADEL [Suspect]
     Indication: AFFECTIVE DISORDER
     Dosage: 800 MG, UNK
     Route: 048
  6. AMITRIPTYLINE [Concomitant]
  7. BALSALAZIDE [Concomitant]
  8. OMEPRAZOLE [Concomitant]
     Route: 048

REACTIONS (9)
  - DIARRHOEA [None]
  - DRUG DOSE OMISSION [None]
  - INTESTINAL OBSTRUCTION [None]
  - INTESTINAL RESECTION [None]
  - NEUTROPHIL COUNT INCREASED [None]
  - PLATELET COUNT INCREASED [None]
  - PULMONARY THROMBOSIS [None]
  - VOMITING [None]
  - WHITE BLOOD CELL COUNT INCREASED [None]
